FAERS Safety Report 13820655 (Version 1)
Quarter: 2017Q3

REPORT INFORMATION
  Report Type: Spontaneous
  Country: US (occurrence: US)
  Receive Date: 20170801
  Receipt Date: 20170801
  Transmission Date: 20171127
  Serious: No
  Sender: FDA-Public Use
  Company Number: None

PATIENT
  Age: 40 Year
  Sex: Male

DRUGS (8)
  1. GABAPENTIN. [Concomitant]
     Active Substance: GABAPENTIN
  2. FOLIC ACID. [Concomitant]
     Active Substance: FOLIC ACID
  3. KINERET [Concomitant]
     Active Substance: ANAKINRA
  4. CIMZIA [Suspect]
     Active Substance: CERTOLIZUMAB PEGOL
     Indication: RHEUMATOID ARTHRITIS
     Route: 058
     Dates: start: 20130103
  5. PRED [Concomitant]
     Active Substance: PREDNISONE
  6. ULORIC [Concomitant]
     Active Substance: FEBUXOSTAT
  7. PROBENCID [Concomitant]
  8. VITAMIN D3 [Concomitant]
     Active Substance: CHOLECALCIFEROL

REACTIONS (2)
  - Loss of personal independence in daily activities [None]
  - Rheumatoid arthritis [None]

NARRATIVE: CASE EVENT DATE: 201706
